FAERS Safety Report 14119870 (Version 1)
Quarter: 2017Q4

REPORT INFORMATION
  Report Type: Spontaneous
  Country: US (occurrence: None)
  Receive Date: 20171024
  Receipt Date: 20171024
  Transmission Date: 20180321
  Serious: No
  Sender: FDA-Public Use
  Company Number: None

PATIENT

DRUGS (1)
  1. DEPO-MEDROL [Suspect]
     Active Substance: METHYLPREDNISOLONE ACETATE
     Route: 030

REACTIONS (8)
  - Contusion [None]
  - Erythema [None]
  - Muscle atrophy [None]
  - Adrenal disorder [None]
  - Depression [None]
  - Weight increased [None]
  - Musculoskeletal pain [None]
  - Feeling hot [None]

NARRATIVE: CASE EVENT DATE: 2017
